FAERS Safety Report 22659951 (Version 1)
Quarter: 2023Q2

REPORT INFORMATION
  Report Type: Spontaneous
  Country: US (occurrence: US)
  Receive Date: 20230630
  Receipt Date: 20230630
  Transmission Date: 20230722
  Serious: Yes (Hospitalization, Other)
  Sender: FDA-Public Use
  Company Number: None

PATIENT

DRUGS (1)
  1. DOXYCYCLINE [Suspect]
     Active Substance: DOXYCYCLINE
     Indication: Acne
     Dosage: 1 DOSAGE FORM, 3 DAYS
     Route: 065

REACTIONS (5)
  - Pancreatitis acute [Unknown]
  - Idiosyncratic drug reaction [Unknown]
  - Back pain [Unknown]
  - Nausea [Unknown]
  - Abdominal pain upper [Unknown]
